FAERS Safety Report 6654171-7 (Version None)
Quarter: 2010Q1

REPORT INFORMATION
  Report Type: 
  Country: None (occurrence: None)
  Receive Date: 20100326
  Receipt Date: 20100315
  Transmission Date: 20100710
  Serious: Yes (Hospitalization)
  Sender: FDA-Public Use
  Company Number: FR-WYE-H14210910

PATIENT
  Sex: Male

DRUGS (4)
  1. INIPOMP [Suspect]
     Dosage: UNKNOWN
     Route: 048
     Dates: start: 20080318, end: 20080330
  2. CEFOTAXIME [Suspect]
     Dosage: UNKNOWN
     Route: 042
     Dates: start: 20080301, end: 20080401
  3. FOSFOCINA [Suspect]
     Dosage: UNKNOWN
     Route: 042
     Dates: start: 20080301, end: 20080401
  4. VANCOMYCIN [Suspect]
     Dosage: 1 GRAM, FREQUENCY UNKNOWN
     Route: 042
     Dates: start: 20080301, end: 20080401

REACTIONS (10)
  - AGRANULOCYTOSIS [None]
  - ANAEMIA [None]
  - CYTOLYTIC HEPATITIS [None]
  - FACE OEDEMA [None]
  - MYALGIA [None]
  - OEDEMA GENITAL [None]
  - PYREXIA [None]
  - RASH MACULO-PAPULAR [None]
  - SKIN EXFOLIATION [None]
  - TOXIC SKIN ERUPTION [None]
